FAERS Safety Report 9331073 (Version 3)
Quarter: 2013Q3

REPORT INFORMATION
  Report Type: Report from Study
  Country: JP (occurrence: JP)
  Receive Date: 20130605
  Receipt Date: 20130916
  Transmission Date: 20140515
  Serious: Yes (Other)
  Sender: FDA-Public Use
  Company Number: JP-JNJFOC-20130522501

PATIENT
  Age: 60 Year
  Sex: Male

DRUGS (15)
  1. STELARA [Suspect]
     Indication: PUSTULAR PSORIASIS
     Route: 058
     Dates: start: 20130315
  2. STELARA [Suspect]
     Indication: PUSTULAR PSORIASIS
     Route: 058
     Dates: start: 20120904, end: 20120904
  3. STELARA [Suspect]
     Indication: PUSTULAR PSORIASIS
     Route: 058
     Dates: start: 20121002, end: 20121002
  4. STELARA [Suspect]
     Indication: PUSTULAR PSORIASIS
     Route: 058
     Dates: start: 20121225, end: 20121225
  5. STELARA [Suspect]
     Indication: PSORIATIC ARTHROPATHY
     Route: 058
     Dates: start: 20120904, end: 20120904
  6. STELARA [Suspect]
     Indication: PSORIATIC ARTHROPATHY
     Route: 058
     Dates: start: 20121002, end: 20121002
  7. STELARA [Suspect]
     Indication: PSORIATIC ARTHROPATHY
     Route: 058
     Dates: start: 20121225, end: 20121225
  8. STELARA [Suspect]
     Indication: PSORIATIC ARTHROPATHY
     Route: 058
     Dates: start: 20130315
  9. BIOTIN [Concomitant]
     Indication: PUSTULAR PSORIASIS
     Route: 048
  10. BIOTIN [Concomitant]
     Indication: PSORIATIC ARTHROPATHY
     Route: 048
  11. FULMETA [Concomitant]
     Indication: PUSTULAR PSORIASIS
     Route: 061
  12. FULMETA [Concomitant]
     Indication: PSORIATIC ARTHROPATHY
     Route: 061
  13. DOVONEX [Concomitant]
     Indication: PUSTULAR PSORIASIS
     Route: 062
  14. DOVONEX [Concomitant]
     Indication: PSORIATIC ARTHROPATHY
     Route: 062
  15. ISCOTIN [Concomitant]
     Route: 048
     Dates: end: 20130401

REACTIONS (2)
  - Henoch-Schonlein purpura [Recovered/Resolved]
  - Nasopharyngitis [Recovered/Resolved]
